FAERS Safety Report 10429209 (Version 1)
Quarter: 2014Q3

REPORT INFORMATION
  Report Type: Spontaneous
  Country: US (occurrence: US)
  Receive Date: 20140904
  Receipt Date: 20140904
  Transmission Date: 20150326
  Serious: Yes (Hospitalization)
  Sender: FDA-Public Use
  Company Number: US-ROCHE-1458034

PATIENT
  Sex: Female

DRUGS (2)
  1. RITUXAN [Suspect]
     Active Substance: RITUXIMAB
     Indication: B-CELL LYMPHOMA
     Route: 042
  2. RITUXAN [Suspect]
     Active Substance: RITUXIMAB
     Indication: NON-HODGKIN^S LYMPHOMA

REACTIONS (11)
  - Gastrointestinal haemorrhage [Unknown]
  - Lung infiltration [Unknown]
  - Dyspnoea [Unknown]
  - Anaemia [Unknown]
  - Neutropenia [Unknown]
  - Hypoxia [Unknown]
  - Respiratory failure [Unknown]
  - Infusion related reaction [Unknown]
  - Pneumonia [Unknown]
  - Blood lactate dehydrogenase increased [Unknown]
  - Oxygen saturation decreased [Unknown]
